FAERS Safety Report 15489844 (Version 1)
Quarter: 2018Q4

REPORT INFORMATION
  Report Type: Spontaneous
  Country: US (occurrence: US)
  Receive Date: 20181011
  Receipt Date: 20181011
  Transmission Date: 20190205
  Serious: Yes (Other)
  Sender: FDA-Public Use
  Company Number: US-ASTRAZENECA-2018SF30105

PATIENT
  Sex: Female

DRUGS (1)
  1. TAGRISSO [Suspect]
     Active Substance: OSIMERTINIB
     Indication: LUNG NEOPLASM MALIGNANT
     Route: 048
     Dates: start: 20171101

REACTIONS (8)
  - Metastases to bone [Unknown]
  - Nausea [Unknown]
  - Vomiting [Unknown]
  - Visual impairment [Unknown]
  - Underdose [Unknown]
  - Visual acuity reduced [Unknown]
  - Malignant neoplasm progression [Unknown]
  - Fatigue [Unknown]
